FAERS Safety Report 19738080 (Version 1)
Quarter: 2021Q3

REPORT INFORMATION
  Report Type: Spontaneous
  Country: US (occurrence: US)
  Receive Date: 20210823
  Receipt Date: 20210823
  Transmission Date: 20211014
  Serious: Yes (Hospitalization)
  Sender: FDA-Public Use
  Company Number: US-ASTRAZENECA-2021A676929

PATIENT
  Age: 71 Year
  Sex: Female
  Weight: 70.8 kg

DRUGS (6)
  1. PEPCID [Concomitant]
     Active Substance: FAMOTIDINE
  2. IMFINZI [Suspect]
     Active Substance: DURVALUMAB
     Indication: LUNG NEOPLASM MALIGNANT
     Dosage: 740.0MG UNKNOWN
     Route: 042
     Dates: start: 20210809
  3. IMFINZI [Suspect]
     Active Substance: DURVALUMAB
     Indication: CHEMOTHERAPY
     Route: 042
     Dates: start: 20210809
  4. IMFINZI [Suspect]
     Active Substance: DURVALUMAB
     Indication: LUNG NEOPLASM MALIGNANT
     Route: 042
     Dates: start: 20210809
  5. BENADRYL [Concomitant]
     Active Substance: DIPHENHYDRAMINE HYDROCHLORIDE
  6. IMFINZI [Suspect]
     Active Substance: DURVALUMAB
     Indication: CHEMOTHERAPY
     Dosage: 740.0MG UNKNOWN
     Route: 042
     Dates: start: 20210809

REACTIONS (4)
  - Chest discomfort [Recovered/Resolved]
  - Pruritus [Recovered/Resolved]
  - Infusion related reaction [Recovered/Resolved]
  - Erythema [Recovered/Resolved]

NARRATIVE: CASE EVENT DATE: 20210809
